FAERS Safety Report 8829959 (Version 1)
Quarter: 2012Q4

REPORT INFORMATION
  Report Type: Spontaneous
  Country: US (occurrence: None)
  Receive Date: 20121004
  Receipt Date: 20121004
  Transmission Date: 20130627
  Serious: Yes (Other)
  Sender: FDA-Public Use
  Company Number: CLCY20120146

PATIENT
  Age: 74 Year
  Sex: Female
  Weight: 77.11 kg

DRUGS (10)
  1. COLCRYS [Suspect]
     Indication: GOUT
     Dosage: 1 tab QAM, and 1 tab QHS
     Dates: start: 201204
  2. ALLOPURINOL [Suspect]
     Indication: GOUT
     Dosage: 1 in 1 d
     Route: 048
     Dates: start: 20120916
  3. ALLOPURINOL [Suspect]
     Indication: URIC ACID HIGH
     Dosage: 1 in 1 d
     Route: 048
     Dates: start: 20120916
  4. ALLOPURINOL [Suspect]
     Indication: GOUT
     Dosage: 1 in  1 d
     Route: 048
     Dates: start: 201207, end: 20120925
  5. ALLOPURINOL [Suspect]
     Indication: URIC ACID HIGH
     Dosage: 1 in  1 d
     Route: 048
     Dates: start: 201207, end: 20120925
  6. DILTIAZEM [Concomitant]
  7. LIS.INOPRIL [Concomitant]
  8. PLAVIX [Concomitant]
  9. ASPIRIN [Concomitant]
  10. PRAVASTATIN [Concomitant]

REACTIONS (5)
  - Angina pectoris [None]
  - Myocardial infarction [None]
  - Gout [None]
  - Drug ineffective [None]
  - Coronary artery occlusion [None]
